FAERS Safety Report 16239368 (Version 2)
Quarter: 2019Q2

REPORT INFORMATION
  Report Type: Spontaneous
  Country: US (occurrence: US)
  Receive Date: 20190425
  Receipt Date: 20190506
  Transmission Date: 20190711
  Serious: Yes (Other)
  Sender: FDA-Public Use
  Company Number: US-PFIZER INC-2019169025

PATIENT
  Age: 62 Year
  Sex: Female
  Weight: 135 kg

DRUGS (2)
  1. NEURONTIN [Suspect]
     Active Substance: GABAPENTIN
     Indication: FIBROMYALGIA
     Dosage: 600 MG, TWICE A DAY  [ I TAKE IT IN THE MORNING AND I TAKE ONE IN THE EVENING]
  2. NEURONTIN [Suspect]
     Active Substance: GABAPENTIN
     Dosage: 300 MG, TWICE A DAY  [ I TAKE IT IN THE MORNING AND I TAKE ONE IN THE EVENING]

REACTIONS (11)
  - Sleep disorder [Unknown]
  - Drug dependence [Unknown]
  - Pruritus [Unknown]
  - Herpes zoster [Unknown]
  - Nerve injury [Unknown]
  - Abdominal discomfort [Unknown]
  - Irritability [Unknown]
  - Product use in unapproved indication [Unknown]
  - Micturition urgency [Unknown]
  - Peripheral swelling [Unknown]
  - Withdrawal syndrome [Unknown]
